FAERS Safety Report 5107210-9 (Version None)
Quarter: 2006Q3

REPORT INFORMATION
  Report Type: 
  Country: None (occurrence: None)
  Receive Date: 20060913
  Receipt Date: 20060823
  Transmission Date: 20061208
  Serious: Yes (Hospitalization, Other)
  Sender: FDA-Public Use
  Company Number: US200606004406

PATIENT
  Age: 75 Year
  Sex: Female

DRUGS (3)
  1. FORTEO [Suspect]
     Indication: FRACTURE
     Dates: start: 20060517, end: 20060101
  2. FORTEO [Suspect]
     Indication: FRACTURE
     Dates: start: 20051101
  3. FORTEO PEN (FORTEO PEN) [Concomitant]

REACTIONS (13)
  - ARTHRALGIA [None]
  - ASTHENIA [None]
  - BONE DISORDER [None]
  - BUNION [None]
  - ERYTHEMA [None]
  - FALL [None]
  - FEMUR FRACTURE [None]
  - HYPOAESTHESIA [None]
  - IMPAIRED HEALING [None]
  - MUSCULAR WEAKNESS [None]
  - PHARMACEUTICAL PRODUCT COMPLAINT [None]
  - SKIN REACTION [None]
  - WRIST FRACTURE [None]
